FAERS Safety Report 9780880 (Version 1)
Quarter: 2013Q4

REPORT INFORMATION
  Report Type: Spontaneous
  Country: GB (occurrence: None)
  Receive Date: 20131220
  Receipt Date: 20131220
  Transmission Date: 20140711
  Serious: Yes (Hospitalization)
  Sender: FDA-Public Use
  Company Number: 2013-GB-004510

PATIENT
  Age: 68 Year
  Sex: Male

DRUGS (1)
  1. CLOZAPINE (CLOZAPINE) [Suspect]
     Route: 048

REACTIONS (7)
  - Toxicity to various agents [None]
  - Unresponsive to stimuli [None]
  - Pneumonia aspiration [None]
  - Intentional overdose [None]
  - Hypotension [None]
  - Renal failure acute [None]
  - Fall [None]
